FAERS Safety Report 25816795 (Version 1)
Quarter: 2025Q3

REPORT INFORMATION
  Report Type: Spontaneous
  Country: GB (occurrence: GB)
  Receive Date: 20250918
  Receipt Date: 20250918
  Transmission Date: 20251021
  Serious: Yes (Life-Threatening, Disabling, Other)
  Sender: ABBVIE
  Company Number: None

PATIENT
  Sex: Male
  Weight: 77 kg

DRUGS (1)
  1. CITALOPRAM [Suspect]
     Active Substance: CITALOPRAM
     Indication: Depression
     Dosage: OVERDOSE NOS: 50MG ONCE A DAY
     Route: 065

REACTIONS (4)
  - Sexual dysfunction [Not Recovered/Not Resolved]
  - Overdose [Unknown]
  - Product administered to patient of inappropriate age [Unknown]
  - Medication error [Unknown]
